FAERS Safety Report 7756606-5 (Version None)
Quarter: 2011Q3

REPORT INFORMATION
  Report Type: 
  Country: None (occurrence: None)
  Receive Date: 20110916
  Receipt Date: 20110913
  Transmission Date: 20111222
  Serious: Yes (Other)
  Sender: FDA-Public Use
  Company Number: PHEH2011US01463

PATIENT

DRUGS (1)
  1. EXELON [Suspect]
     Dosage: UNK UKN, UNK
     Route: 062

REACTIONS (3)
  - CONVULSION [None]
  - TRANSIENT ISCHAEMIC ATTACK [None]
  - TOOTH LOSS [None]
